FAERS Safety Report 6409889-8 (Version None)
Quarter: 2009Q4

REPORT INFORMATION
  Report Type: 
  Country: None (occurrence: None)
  Receive Date: 20091022
  Receipt Date: 20091019
  Transmission Date: 20100525
  Serious: Yes (Other)
  Sender: FDA-Public Use
  Company Number: DE-TEVA-212773ISR

PATIENT
  Age: 59 Year
  Sex: Female

DRUGS (2)
  1. PACLITAXEL [Suspect]
     Indication: BREAST CANCER
  2. BEVACIZUMAB [Suspect]
     Indication: BREAST CANCER
     Route: 042

REACTIONS (1)
  - CHOLANGITIS SCLEROSING [None]
